FAERS Safety Report 18999512 (Version 1)
Quarter: 2021Q1

REPORT INFORMATION
  Report Type: Other
  Country: GB (occurrence: GB)
  Receive Date: 20210311
  Receipt Date: 20210311
  Transmission Date: 20210420
  Serious: Yes (Other)
  Sender: FDA-Public Use
  Company Number: GB-COLLEGIUM PHARMACEUTICAL, INC.-2021CGM00187

PATIENT
  Age: 38 Year
  Sex: Female

DRUGS (4)
  1. SERTRALINE [Concomitant]
     Active Substance: SERTRALINE HYDROCHLORIDE
  2. NORTRIPTYLINE [Concomitant]
     Active Substance: NORTRIPTYLINE
  3. NUCYNTA [Suspect]
     Active Substance: TAPENTADOL HYDROCHLORIDE
     Indication: PAIN
     Dosage: 2 ML, 1X/DAY
     Route: 048
  4. TAPENTADOL [Concomitant]
     Active Substance: TAPENTADOL

REACTIONS (2)
  - Suspected transmission of an infectious agent via product [Unknown]
  - Urinary tract infection [Unknown]
